FAERS Safety Report 5835842-9 (Version None)
Quarter: 2008Q3

REPORT INFORMATION
  Report Type: 
  Country: None (occurrence: None)
  Receive Date: 20080806
  Receipt Date: 20080805
  Transmission Date: 20090109
  Serious: Yes (Life-Threatening)
  Sender: FDA-Public Use
  Company Number: GB-BOEHRINGER INGELHEIM GMBH, GERMANY-2008-UK-01225UK

PATIENT
  Sex: Male

DRUGS (1)
  1. ATROVENT [Suspect]
     Indication: ASTHMA
     Dosage: 2 PUFFS
     Route: 055

REACTIONS (1)
  - DYSPNOEA [None]
